FAERS Safety Report 7488500-1 (Version None)
Quarter: 2011Q2

REPORT INFORMATION
  Report Type: 
  Country: None (occurrence: None)
  Receive Date: 20110518
  Receipt Date: 20110510
  Transmission Date: 20111010
  Serious: Yes (Hospitalization)
  Sender: FDA-Public Use
  Company Number: JP-MERCK-1102USA01283

PATIENT
  Age: 37 Year
  Sex: Female
  Weight: 52 kg

DRUGS (3)
  1. PEPCID [Suspect]
     Indication: PROPHYLAXIS AGAINST GASTROINTESTINAL ULCER
     Route: 041
     Dates: start: 20110129, end: 20110202
  2. VICCLOX [Concomitant]
     Indication: ENCEPHALITIS VIRAL
     Route: 065
     Dates: start: 20110129, end: 20110210
  3. ROCEPHIN [Concomitant]
     Indication: MENINGITIS BACTERIAL
     Route: 065
     Dates: start: 20110129, end: 20110130

REACTIONS (1)
  - BLOOD CREATINE PHOSPHOKINASE INCREASED [None]
